FAERS Safety Report 12343458 (Version 3)
Quarter: 2016Q3

REPORT INFORMATION
  Report Type: Spontaneous
  Country: KR (occurrence: KR)
  Receive Date: 20160506
  Receipt Date: 20160719
  Transmission Date: 20161109
  Serious: Yes (Hospitalization)
  Sender: FDA-Public Use
  Company Number: KR-TAKEDA-2016MPI001554

PATIENT
  Age: 78 Year
  Sex: Female
  Weight: 59 kg

DRUGS (105)
  1. VELCADE [Suspect]
     Active Substance: BORTEZOMIB
     Dosage: 1.6 MG, UNK
     Route: 058
     Dates: start: 20160429
  2. FLATORIL [Concomitant]
     Active Substance: CLEBOPRIDE MALATE\DIMETHICONE
     Indication: PYLORIC STENOSIS
     Dosage: UNK
     Route: 065
  3. ACTOCORTINA [Concomitant]
     Active Substance: HYDROCORTISONE SODIUM PHOSPHATE
     Indication: INFUSION RELATED REACTION
     Dosage: UNK
     Route: 065
  4. SEGURIL [Concomitant]
     Active Substance: FUROSEMIDE
     Indication: INFUSION RELATED REACTION
     Dosage: UNK
     Route: 065
  5. POTASSIUM CHLORIDE. [Concomitant]
     Active Substance: POTASSIUM CHLORIDE
     Indication: BLOOD POTASSIUM INCREASED
     Dosage: 20 ML, UNK
     Route: 042
     Dates: start: 20160222, end: 20160223
  6. LASIX [Concomitant]
     Active Substance: FUROSEMIDE
     Dosage: 40 MG, UNK
     Route: 048
     Dates: start: 20160222, end: 20160222
  7. CIPROCTAN [Concomitant]
     Indication: INFECTION PROPHYLAXIS
     Dosage: 400 MG, BID
     Route: 042
     Dates: start: 20160216, end: 20160218
  8. FENTANYL CITRATE. [Concomitant]
     Active Substance: FENTANYL CITRATE
     Indication: PAIN
     Dosage: 0.1 MG, UNK
     Route: 042
     Dates: start: 20160226, end: 20160301
  9. HALOPERIDOL. [Concomitant]
     Active Substance: HALOPERIDOL
     Indication: DELIRIUM
     Dosage: 2.5 MG, UNK
     Route: 042
     Dates: start: 20160301, end: 20160303
  10. ATROVENT UDV [Concomitant]
     Active Substance: IPRATROPIUM BROMIDE
     Indication: DYSPNOEA
     Dosage: 500 ?G, UNK
     Route: 055
     Dates: start: 20160223, end: 20160223
  11. PREDNISONE. [Suspect]
     Active Substance: PREDNISONE
     Indication: PLASMA CELL MYELOMA
     Dosage: 95 MG, UNK
     Route: 048
     Dates: start: 20160220, end: 20160222
  12. DENOGAN [Concomitant]
     Active Substance: PROPACETAMOL HYDROCHLORIDE
     Dosage: 3 G, BID
     Route: 042
     Dates: start: 20160229, end: 20160303
  13. TRIDOL [Concomitant]
     Active Substance: TRAMADOL HYDROCHLORIDE
     Indication: PAIN
     Dosage: 50 MG, UNK
     Route: 042
     Dates: start: 20160209, end: 20160302
  14. ULTRACET [Concomitant]
     Active Substance: ACETAMINOPHEN\TRAMADOL HYDROCHLORIDE
     Indication: BACK PAIN
     Dosage: UNK, TID
     Route: 048
     Dates: start: 20160227, end: 20160301
  15. ULTRACET [Concomitant]
     Active Substance: ACETAMINOPHEN\TRAMADOL HYDROCHLORIDE
     Dosage: UNK, BID
     Route: 048
     Dates: start: 20160219, end: 20160226
  16. ULTRACET [Concomitant]
     Active Substance: ACETAMINOPHEN\TRAMADOL HYDROCHLORIDE
     Dosage: UNK, TID
     Route: 048
     Dates: start: 20160319, end: 20160325
  17. PANORIN [Concomitant]
     Dosage: 90 MG, UNK
     Route: 042
     Dates: start: 20160401, end: 20160401
  18. ZYLORIC [Concomitant]
     Active Substance: ALLOPURINOL
     Indication: PAIN PROPHYLAXIS
     Dosage: 300 MG, UNK
     Route: 048
     Dates: start: 20160219
  19. URSODESOXYCHOLIC ACID [Concomitant]
     Active Substance: URSODIOL
     Indication: LIVER FUNCTION TEST INCREASED
     Dosage: 100 MG, UNK
     Route: 048
     Dates: start: 20160224, end: 20160301
  20. LENOGRASTIM [Concomitant]
     Active Substance: LENOGRASTIM
     Indication: NEUTROPHIL COUNT DECREASED
     Dosage: 250 ?G, UNK
     Route: 042
     Dates: start: 20160320, end: 20160320
  21. VELCADE [Suspect]
     Active Substance: BORTEZOMIB
     Dosage: 1.6 MG, UNK
     Route: 058
     Dates: start: 20160408
  22. DARATUMUMAB [Suspect]
     Active Substance: DARATUMUMAB
     Dosage: UNK
     Route: 042
  23. LORAZEPAM. [Concomitant]
     Active Substance: LORAZEPAM
     Indication: PROPHYLAXIS
     Dosage: UNK
     Route: 065
  24. METHOTREXATE. [Concomitant]
     Active Substance: METHOTREXATE
     Indication: RHEUMATOID ARTHRITIS
     Dosage: UNK
     Route: 065
  25. GANCICLOVIR. [Concomitant]
     Active Substance: GANCICLOVIR
     Indication: PNEUMONIA
     Dosage: 500 MG, UNK
     Route: 042
     Dates: start: 20160301, end: 20160307
  26. ITRACONAZOLE. [Concomitant]
     Active Substance: ITRACONAZOLE
     Indication: PNEUMONIA
     Dosage: 200 MG, BID
     Route: 042
     Dates: start: 20160305, end: 20160308
  27. LEVOFLOXACIN. [Concomitant]
     Active Substance: LEVOFLOXACIN
     Indication: PNEUMONIA
     Dosage: 750 MG, UNK
     Route: 042
     Dates: start: 20160226, end: 20160303
  28. PETHIDINE HCL [Concomitant]
     Indication: PROPHYLAXIS
     Dosage: 25 MG, UNK
     Route: 030
     Dates: start: 20160204, end: 20160204
  29. DENOGAN [Concomitant]
     Active Substance: PROPACETAMOL HYDROCHLORIDE
     Indication: ANTIPYRESIS
     Dosage: 1 G, TID
     Route: 042
     Dates: start: 20160213, end: 20160314
  30. DENOGAN [Concomitant]
     Active Substance: PROPACETAMOL HYDROCHLORIDE
     Indication: PYREXIA
     Dosage: 2 G, UNK
     Route: 042
     Dates: start: 20160305, end: 20160305
  31. DEXAMETHASONE                      /00016002/ [Concomitant]
     Active Substance: DEXAMETHASONE SODIUM PHOSPHATE
     Indication: PREMEDICATION
     Dosage: 20 MG, UNK
     Route: 042
     Dates: start: 20160219
  32. ACETAMINOPHEN. [Concomitant]
     Active Substance: ACETAMINOPHEN
     Indication: PREMEDICATION
     Dosage: 650 MG, UNK
     Route: 048
     Dates: start: 20160219
  33. VELCADE [Suspect]
     Active Substance: BORTEZOMIB
     Dosage: 1.6 MG, UNK
     Route: 058
     Dates: start: 20160422
  34. DARATUMUMAB [Suspect]
     Active Substance: DARATUMUMAB
     Indication: PLASMA CELL MYELOMA
     Dosage: 944 MG, UNK
     Route: 042
     Dates: start: 20160219, end: 20160219
  35. OMEPRAZOLE. [Concomitant]
     Active Substance: OMEPRAZOLE
     Indication: PROPHYLAXIS
     Dosage: UNK
     Route: 065
  36. POTASSIUM CHLORIDE. [Concomitant]
     Active Substance: POTASSIUM CHLORIDE
     Dosage: 160 ML, UNK
     Route: 042
     Dates: start: 20160401, end: 20160409
  37. MG TNA [Concomitant]
     Indication: NUTRITIONAL SUPPLEMENTATION
     Dosage: 1000 ML, UNK
     Route: 042
     Dates: start: 20160302, end: 20160309
  38. CIPROCTAN [Concomitant]
     Dosage: 500 MG, UNK
     Route: 048
     Dates: start: 20160224, end: 20160225
  39. K-CONTIN [Concomitant]
     Indication: BLOOD POTASSIUM INCREASED
     Dosage: 1200 MG, TID
     Route: 048
     Dates: start: 20160223, end: 20160301
  40. K-CONTIN [Concomitant]
     Dosage: 600 MG, UNK
     Route: 048
     Dates: start: 20160221, end: 20160221
  41. ULTRACET [Concomitant]
     Active Substance: ACETAMINOPHEN\TRAMADOL HYDROCHLORIDE
     Dosage: UNK, TID
     Route: 048
     Dates: start: 20160326
  42. VACROVIR                           /00587301/ [Concomitant]
     Indication: INFECTION PROPHYLAXIS
     Dosage: 500 MG, BID
     Route: 048
     Dates: start: 20160325, end: 20160331
  43. CODEINE PHOSPHATE [Concomitant]
     Active Substance: CODEINE PHOSPHATE
     Indication: COUGH
     Dosage: 20 MG, BID
     Route: 048
     Dates: start: 20160225, end: 20160301
  44. PANTOPRAZOLE [Concomitant]
     Active Substance: PANTOPRAZOLE SODIUM
     Indication: GASTROINTESTINAL DISORDER THERAPY
     Dosage: 40 MG, UNK
     Route: 042
     Dates: start: 20160302, end: 20160314
  45. MICAFUNGIN SODIUM [Concomitant]
     Active Substance: MICAFUNGIN SODIUM
     Indication: PNEUMONIA
     Dosage: 50 MG, UNK
     Route: 042
     Dates: start: 20160309, end: 20160310
  46. TWYNSTA [Concomitant]
     Active Substance: AMLODIPINE BESYLATE\TELMISARTAN
     Indication: HYPERTENSION
     Dosage: 5 MG, UNK
     Route: 048
     Dates: start: 20160331, end: 20160331
  47. VELCADE [Suspect]
     Active Substance: BORTEZOMIB
     Dosage: 1.6 MG, UNK
     Route: 058
     Dates: start: 20160511
  48. VELCADE [Suspect]
     Active Substance: BORTEZOMIB
     Dosage: 1.6 MG, UNK
     Route: 058
     Dates: start: 20160518
  49. DARATUMUMAB [Suspect]
     Active Substance: DARATUMUMAB
     Dosage: UNK
     Route: 042
  50. DARATUMUMAB [Suspect]
     Active Substance: DARATUMUMAB
     Dosage: UNK
     Route: 042
  51. CALCIUM CARBONATE AND VITAMIN D [Concomitant]
     Indication: UPPER RESPIRATORY TRACT INFECTION
     Dosage: UNK
     Route: 065
  52. FOLIC ACID. [Concomitant]
     Active Substance: FOLIC ACID
     Indication: UPPER RESPIRATORY TRACT INFECTION
     Dosage: UNK
     Route: 065
  53. PARACETAMOL [Concomitant]
     Active Substance: ACETAMINOPHEN
     Indication: OSTEOARTHRITIS
     Dosage: UNK
     Route: 065
  54. PREDNISONE. [Concomitant]
     Active Substance: PREDNISONE
     Indication: RHEUMATOID ARTHRITIS
     Dosage: UNK
     Route: 065
  55. POTASSIUM CHLORIDE. [Concomitant]
     Active Substance: POTASSIUM CHLORIDE
     Dosage: 20 ML, UNK
     Route: 042
     Dates: start: 20160308, end: 20160313
  56. ITRACONAZOLE. [Concomitant]
     Active Substance: ITRACONAZOLE
     Dosage: 10 MG, UNK
     Route: 042
     Dates: start: 20160314, end: 20160409
  57. PERINDOPRIL TERT-BUTYLAMINE [Concomitant]
     Active Substance: PERINDOPRIL ERBUMINE
     Indication: HYPERTENSION
     Dosage: 2 MG, UNK
     Route: 048
     Dates: start: 20160226, end: 20160301
  58. LASIX [Concomitant]
     Active Substance: FUROSEMIDE
     Indication: FLUID RETENTION
     Dosage: 10 MG, UNK
     Route: 042
     Dates: start: 20160227, end: 20160227
  59. TABACTAM [Concomitant]
     Indication: INFECTION PROPHYLAXIS
     Dosage: 4.5 G, TID
     Route: 042
     Dates: start: 20160204, end: 20160213
  60. DENOGAN [Concomitant]
     Active Substance: PROPACETAMOL HYDROCHLORIDE
     Dosage: 2 G, UNK
     Route: 042
     Dates: start: 20160204, end: 20160304
  61. CIPROCTAN [Concomitant]
     Dosage: 500 MG, UNK
     Route: 048
     Dates: start: 20160401
  62. K-CONTIN [Concomitant]
     Dosage: 1200 MG, TID
     Route: 048
     Dates: start: 20160216, end: 20160218
  63. ULTRACET [Concomitant]
     Active Substance: ACETAMINOPHEN\TRAMADOL HYDROCHLORIDE
     Dosage: UNK
     Route: 048
     Dates: start: 20160217, end: 20160217
  64. VACROVIR                           /00587301/ [Concomitant]
     Dosage: 250 MG, UNK
     Route: 048
     Dates: start: 20160401
  65. NORVASC [Concomitant]
     Active Substance: AMLODIPINE BESYLATE
     Indication: HYPERTENSION
     Dosage: 5 MG, UNK
     Route: 048
     Dates: start: 20160219
  66. FLUCONAZOLE. [Concomitant]
     Active Substance: FLUCONAZOLE
     Indication: INFECTION PROPHYLAXIS
     Dosage: 200 MG, UNK
     Route: 048
     Dates: start: 20160219
  67. SEROQUEL [Concomitant]
     Active Substance: QUETIAPINE FUMARATE
     Indication: INSOMNIA
     Dosage: 12.5 MG, UNK
     Route: 048
     Dates: start: 20160220, end: 20160408
  68. PREGABALIN. [Concomitant]
     Active Substance: PREGABALIN
     Indication: BACK PAIN
     Dosage: 75 MG, UNK
     Route: 048
     Dates: start: 20160322
  69. VELCADE [Suspect]
     Active Substance: BORTEZOMIB
     Dosage: 1.6 MG, UNK
     Route: 058
     Dates: start: 20160401
  70. PREDNISONE. [Suspect]
     Active Substance: PREDNISONE
     Dosage: 70 MG, UNK
     Route: 048
     Dates: start: 20160401, end: 20160404
  71. METHYLPREDNISOLONE. [Concomitant]
     Active Substance: METHYLPREDNISOLONE
     Indication: UPPER RESPIRATORY TRACT INFECTION
     Dosage: UNK
     Route: 065
  72. PETHIDINE HCL [Concomitant]
     Indication: BIOPSY BONE MARROW
     Dosage: 25 MG, UNK
     Route: 030
     Dates: start: 20160204, end: 20160204
  73. TRIDOL [Concomitant]
     Active Substance: TRAMADOL HYDROCHLORIDE
     Dosage: 100 MG, UNK
     Route: 042
     Dates: start: 20160302, end: 20160302
  74. TRIDOL [Concomitant]
     Active Substance: TRAMADOL HYDROCHLORIDE
     Dosage: 50 MG, QID
     Route: 030
     Dates: start: 20160303, end: 20160307
  75. CARDUUS MARIANUS [Concomitant]
     Indication: LIVER FUNCTION TEST INCREASED
     Dosage: UNK, TID
     Route: 048
     Dates: start: 20160224, end: 20160301
  76. TAPOCIN [Concomitant]
     Indication: PNEUMONIA
     Dosage: 400 MG, UNK
     Route: 042
     Dates: start: 20160229, end: 20160317
  77. NUTRIFLEX LIPID PERI [Concomitant]
     Indication: NUTRITIONAL SUPPLEMENTATION
     Dosage: 1250 ML, UNK
     Route: 042
     Dates: start: 20160310, end: 20160313
  78. VELCADE [Suspect]
     Active Substance: BORTEZOMIB
     Indication: PLASMA CELL MYELOMA
     Dosage: 2 MG, UNK
     Route: 058
     Dates: start: 20160219, end: 20160222
  79. MELPHALAN [Suspect]
     Active Substance: MELPHALAN
     Indication: PLASMA CELL MYELOMA
     Dosage: 14 MG, UNK
     Route: 048
     Dates: start: 20160219, end: 20160222
  80. MELPHALAN [Suspect]
     Active Substance: MELPHALAN
     Dosage: 10 MG, UNK
     Route: 048
     Dates: start: 20160401, end: 20160404
  81. ACTOCORTINA [Concomitant]
     Active Substance: HYDROCORTISONE SODIUM PHOSPHATE
     Indication: UPPER RESPIRATORY TRACT INFECTION
     Dosage: UNK
     Route: 065
  82. POLARAMINE [Concomitant]
     Active Substance: DEXCHLORPHENIRAMINE MALEATE
     Indication: INFUSION RELATED REACTION
     Dosage: UNK
     Route: 065
  83. PREDNISONA [Concomitant]
     Active Substance: PREDNISONE
     Indication: UPPER RESPIRATORY TRACT INFECTION
     Dosage: UNK
     Route: 065
  84. TELMISARTAN. [Concomitant]
     Active Substance: TELMISARTAN
     Indication: HYPERTENSION
     Dosage: UNK
     Route: 065
  85. MEROPENEM TRIHYDRATE [Concomitant]
     Active Substance: MEROPENEM
     Indication: PNEUMONIA
     Dosage: 1 G, TID
     Route: 042
     Dates: start: 20160303, end: 20160317
  86. LASIX [Concomitant]
     Active Substance: FUROSEMIDE
     Dosage: 40 MG, BID
     Route: 048
     Dates: start: 20160223, end: 20160223
  87. PIPRINHYDRINATE [Concomitant]
     Indication: PREMEDICATION
     Dosage: 3 MG, UNK
     Route: 042
     Dates: start: 20160219
  88. CIPROCTAN [Concomitant]
     Indication: PREMEDICATION
     Dosage: 500 MG, BID
     Route: 048
     Dates: start: 20160219, end: 20160223
  89. K-CONTIN [Concomitant]
     Dosage: 600 MG, BID
     Route: 048
     Dates: start: 20160316, end: 20160318
  90. VACROVIR                           /00587301/ [Concomitant]
     Dosage: 1000 MG, UNK
     Route: 048
     Dates: start: 20160217, end: 20160301
  91. PANORIN [Concomitant]
     Indication: PROPHYLAXIS
     Dosage: 90 MG, BID
     Route: 042
     Dates: start: 20160219, end: 20160219
  92. SPIRONOLACTON [Concomitant]
     Active Substance: SPIRONOLACTONE
     Indication: FLUID RETENTION
     Dosage: 25 MG, UNK
     Route: 048
     Dates: start: 20160223, end: 20160225
  93. NICARDIPINE [Concomitant]
     Active Substance: NICARDIPINE
     Indication: HYPERTENSION
     Dosage: 24 MG, UNK
     Route: 042
     Dates: start: 20160223, end: 20160309
  94. DALTEPARIN SODIUM [Concomitant]
     Active Substance: DALTEPARIN SODIUM
     Indication: ANTICOAGULANT THERAPY
     Dosage: UNK
     Route: 058
     Dates: start: 20160226, end: 20160305
  95. CEFEPIME [Concomitant]
     Active Substance: CEFEPIME HYDROCHLORIDE
     Indication: PNEUMONIA
     Dosage: 2 G, TID
     Route: 042
     Dates: start: 20160225, end: 20160303
  96. COMBIFLEX PERI [Concomitant]
     Indication: NUTRITIONAL SUPPLEMENTATION
     Dosage: 1100 ML, UNK
     Route: 042
     Dates: start: 20160315, end: 20160331
  97. LACTULOSE. [Concomitant]
     Active Substance: LACTULOSE
     Indication: CONSTIPATION
     Dosage: 15 ML, UNK
     Route: 048
     Dates: start: 20160326
  98. SEGURIL [Concomitant]
     Active Substance: FUROSEMIDE
     Indication: PROPHYLAXIS
     Dosage: UNK
     Route: 065
  99. VENTOLIN [Concomitant]
     Active Substance: ALBUTEROL SULFATE
     Indication: UPPER RESPIRATORY TRACT INFECTION
     Dosage: UNK
     Route: 065
  100. ATROVENT [Concomitant]
     Active Substance: IPRATROPIUM BROMIDE
     Indication: UPPER RESPIRATORY TRACT INFECTION
     Dosage: UNK
     Route: 065
  101. ALDOCUMAR [Concomitant]
     Active Substance: WARFARIN SODIUM
     Indication: UPPER RESPIRATORY TRACT INFECTION
     Dosage: UNK
     Route: 065
  102. ITRACONAZOLE. [Concomitant]
     Active Substance: ITRACONAZOLE
     Dosage: UNK
     Route: 048
     Dates: start: 20160311
  103. LASIX [Concomitant]
     Active Substance: FUROSEMIDE
     Dosage: 20 MG, UNK
     Route: 048
     Dates: start: 20160312, end: 20160317
  104. TRIDOL [Concomitant]
     Active Substance: TRAMADOL HYDROCHLORIDE
     Dosage: 50 MG, BID
     Route: 030
     Dates: start: 20160308, end: 20160309
  105. SERENZAL [Concomitant]
     Indication: PERINEAL ERYTHEMA
     Dosage: 5 MG, BID
     Route: 048
     Dates: start: 20160219, end: 20160301

REACTIONS (10)
  - Delirium [Unknown]
  - Neutrophil count decreased [Unknown]
  - Insomnia [Unknown]
  - Pneumonia [Recovered/Resolved]
  - Constipation [Unknown]
  - Liver function test increased [Unknown]
  - Perineal erythema [Unknown]
  - Fluid retention [Unknown]
  - Hypertension [Unknown]
  - Dyspepsia [Unknown]

NARRATIVE: CASE EVENT DATE: 20160220
